FAERS Safety Report 6585342-6 (Version None)
Quarter: 2010Q1

REPORT INFORMATION
  Report Type: 
  Country: None (occurrence: None)
  Receive Date: 20100217
  Receipt Date: 20100210
  Transmission Date: 20100710
  Serious: Yes (Other)
  Sender: FDA-Public Use
  Company Number: US-JNJFOC-20090905913

PATIENT
  Sex: Female

DRUGS (3)
  1. LEVAQUIN [Suspect]
     Indication: ABSCESS
     Route: 048
     Dates: start: 20090101, end: 20090101
  2. STEROID INJECTION NOS [Suspect]
     Indication: MUSCULOSKELETAL PAIN
     Route: 065
     Dates: start: 20090101, end: 20090101
  3. PREDNISONE [Suspect]
     Indication: MUSCULOSKELETAL PAIN
     Route: 048
     Dates: start: 20090101, end: 20090101

REACTIONS (1)
  - JOINT INJURY [None]
